FAERS Safety Report 4946267-2 (Version None)
Quarter: 2006Q1

REPORT INFORMATION
  Report Type: 
  Country: None (occurrence: None)
  Receive Date: 20060317
  Receipt Date: 20060310
  Transmission Date: 20060701
  Serious: Yes (Hospitalization)
  Sender: FDA-Public Use
  Company Number: FR-BOEHRINGER INGELHEIM PHARMACEUTICALS, INC.-2006-FF-00191FF

PATIENT
  Age: 73 Year
  Sex: Female

DRUGS (3)
  1. MICARDIS HCT [Suspect]
     Route: 048
  2. CEBUTID [Concomitant]
     Route: 048
  3. ATENOLOL [Concomitant]
     Route: 048

REACTIONS (3)
  - MOUTH ULCERATION [None]
  - TONGUE ULCERATION [None]
  - TOXIC SKIN ERUPTION [None]
